FAERS Safety Report 4931887-1 (Version None)
Quarter: 2006Q1

REPORT INFORMATION
  Report Type: 
  Country: None (occurrence: None)
  Receive Date: 20060303
  Receipt Date: 20051011
  Transmission Date: 20060701
  Serious: Yes (Hospitalization)
  Sender: FDA-Public Use
  Company Number: US-MERCK-0510USA06923

PATIENT
  Age: 53 Year
  Sex: Female
  Weight: 86 kg

DRUGS (14)
  1. AMITRIPTYLINE HYDROCHLORIDE [Concomitant]
     Indication: DEPRESSION
     Route: 065
  2. VIOXX [Suspect]
     Indication: ARTHRITIS
     Route: 048
     Dates: start: 20020409, end: 20040930
  3. HUMULIN [Concomitant]
     Indication: DIABETES MELLITUS
     Route: 065
  4. LIPITOR [Concomitant]
     Indication: BLOOD CHOLESTEROL
     Route: 065
  5. PRILOSEC [Concomitant]
     Indication: GASTROOESOPHAGEAL REFLUX DISEASE
     Route: 065
  6. ASPIRIN [Concomitant]
     Indication: ANTICOAGULANT THERAPY
     Route: 065
  7. LASIX [Concomitant]
     Indication: BLOOD PRESSURE
     Route: 065
  8. ACCUPRIL [Concomitant]
     Indication: BLOOD PRESSURE
     Route: 065
  9. TIAZAC [Concomitant]
     Indication: BLOOD PRESSURE
     Route: 065
  10. VENTOLIN [Concomitant]
     Indication: ASTHMA
     Route: 065
  11. ATROVENT [Concomitant]
     Indication: ASTHMA
     Route: 065
  12. ACTOS [Concomitant]
     Indication: DIABETES MELLITUS
     Route: 065
  13. GLUCOVANCE [Concomitant]
     Indication: DIABETES MELLITUS
     Route: 065
  14. NIASPAN [Concomitant]
     Indication: BLOOD CHOLESTEROL
     Route: 065

REACTIONS (2)
  - ANGINA PECTORIS [None]
  - CORONARY ARTERY DISEASE [None]
